FAERS Safety Report 10046799 (Version 12)
Quarter: 2014Q3

REPORT INFORMATION
  Report Type: Spontaneous
  Country: US (occurrence: US)
  Receive Date: 20140331
  Receipt Date: 20140715
  Transmission Date: 20150326
  Serious: Yes (Death, Other)
  Sender: FDA-Public Use
  Company Number: PHEH2014US005983

PATIENT
  Sex: Female
  Weight: 69.84 kg

DRUGS (5)
  1. FOSAMAX [Suspect]
     Active Substance: ALENDRONATE SODIUM
     Indication: OSTEOPOROSIS
     Dosage: UNK UKN, UNK
     Dates: start: 1998, end: 200308
  2. AREDIA [Suspect]
     Active Substance: PAMIDRONATE DISODIUM
     Dosage: UNK UKN, UNK
     Route: 042
  3. FOSAMAX [Suspect]
     Active Substance: ALENDRONATE SODIUM
     Dosage: UNK UKN, UNK
     Dates: start: 200806, end: 200811
  4. ZOMETA [Suspect]
     Active Substance: ZOLEDRONIC ACID
     Indication: PLASMA CELL MYELOMA
     Dosage: 4 MG, UNK
     Route: 041
     Dates: start: 1998, end: 200308
  5. ZOMETA [Suspect]
     Active Substance: ZOLEDRONIC ACID
     Indication: OSTEOPOROSIS

REACTIONS (102)
  - Acute coronary syndrome [Unknown]
  - Vitreous detachment [Unknown]
  - Nocturia [Unknown]
  - Otitis media [Unknown]
  - Tympanosclerosis [Unknown]
  - Cerebral haemorrhage [Unknown]
  - Blood glucose increased [Unknown]
  - Chest wall mass [Unknown]
  - Heart rate decreased [Unknown]
  - Cataract [Unknown]
  - Discomfort [Unknown]
  - Dry mouth [Unknown]
  - Dysphonia [Unknown]
  - Aerophagia [Unknown]
  - Poor quality sleep [Unknown]
  - Snoring [Unknown]
  - Skin swelling [Unknown]
  - Throat irritation [Unknown]
  - Oral pain [Unknown]
  - Hyperglycaemia [Unknown]
  - Rectal haemorrhage [Unknown]
  - Diastolic dysfunction [Unknown]
  - Shock [Unknown]
  - Haemorrhage intracranial [Unknown]
  - Dyspnoea exertional [Unknown]
  - Dark circles under eyes [Unknown]
  - Urticaria [Unknown]
  - Dyspepsia [Unknown]
  - Abdominal pain [Unknown]
  - Anaemia [Unknown]
  - Pain in jaw [Unknown]
  - Nasal congestion [Unknown]
  - Jugular vein thrombosis [Unknown]
  - Normochromic normocytic anaemia [Unknown]
  - Fungal infection [Unknown]
  - Posterior reversible encephalopathy syndrome [Unknown]
  - Diabetes mellitus [Unknown]
  - Anxiety [Unknown]
  - Pain [Unknown]
  - Erythema [Unknown]
  - Dry eye [Unknown]
  - Eye pruritus [Unknown]
  - Contusion [Unknown]
  - Eructation [Unknown]
  - Sensitivity of teeth [Unknown]
  - Abdominal discomfort [Unknown]
  - Vision blurred [Unknown]
  - Cyst [Unknown]
  - Ovarian rupture [Unknown]
  - Throat tightness [Unknown]
  - Breast pain [Unknown]
  - Dialysis related complication [Fatal]
  - Osteonecrosis of jaw [Unknown]
  - Urinary incontinence [Unknown]
  - Tinea infection [Unknown]
  - Lentigo [Unknown]
  - Eustachian tube dysfunction [Unknown]
  - Nasal turbinate hypertrophy [Unknown]
  - Paraesthesia [Unknown]
  - Lung infiltration [Unknown]
  - Osteoarthritis [Unknown]
  - Haemorrhagic stroke [Unknown]
  - Speech disorder [Unknown]
  - Emotional distress [Unknown]
  - Weight decreased [Unknown]
  - Decreased appetite [Unknown]
  - Back pain [Unknown]
  - Pyrexia [Unknown]
  - Stress urinary incontinence [Unknown]
  - Pollakiuria [Unknown]
  - Eye irritation [Unknown]
  - Hyperparathyroidism [Unknown]
  - Polydipsia [Unknown]
  - Brain oedema [Unknown]
  - Retinal degeneration [Unknown]
  - Blepharitis [Unknown]
  - Anhedonia [Unknown]
  - Oedema peripheral [Unknown]
  - Sneezing [Unknown]
  - Ear pain [Unknown]
  - Leukoencephalopathy [Unknown]
  - Visual acuity reduced [Unknown]
  - Neurodermatitis [Unknown]
  - Facet joint syndrome [Unknown]
  - Eczema [Unknown]
  - Skin discolouration [Unknown]
  - Peripheral coldness [Unknown]
  - Hypokalaemia [Unknown]
  - Rash [Unknown]
  - Irritability [Unknown]
  - Aortic dissection [Unknown]
  - Vitreous floaters [Unknown]
  - Tumour lysis syndrome [Unknown]
  - Folliculitis [Unknown]
  - Pelvic discomfort [Unknown]
  - Cough [Unknown]
  - Sputum discoloured [Unknown]
  - Palatal disorder [Unknown]
  - Macular pigmentation [Unknown]
  - Glare [Unknown]
  - Wheezing [Unknown]
  - Ear pruritus [Unknown]
